FAERS Safety Report 18922198 (Version 1)
Quarter: 2021Q1

REPORT INFORMATION
  Report Type: Spontaneous
  Country: US (occurrence: US)
  Receive Date: 20210220
  Receipt Date: 20210220
  Transmission Date: 20210420
  Serious: No
  Sender: FDA-Public Use
  Company Number: None

PATIENT
  Age: 61 Year
  Sex: Female
  Weight: 103.5 kg

DRUGS (2)
  1. CLOBETASOL PROPIONATE CREAM [Suspect]
     Active Substance: CLOBETASOL PROPIONATE
     Indication: RASH
     Route: 061
     Dates: start: 20210220, end: 20210220
  2. BENADRYL [Concomitant]
     Active Substance: DIPHENHYDRAMINE HYDROCHLORIDE

REACTIONS (1)
  - Skin discolouration [None]

NARRATIVE: CASE EVENT DATE: 20210220
